FAERS Safety Report 6655849-1 (Version None)
Quarter: 2010Q1

REPORT INFORMATION
  Report Type: 
  Country: None (occurrence: None)
  Receive Date: 20100329
  Receipt Date: 20100318
  Transmission Date: 20100710
  Serious: Yes (Hospitalization)
  Sender: FDA-Public Use
  Company Number: US-BAYER-201015418NA

PATIENT
  Age: 54 Year
  Sex: Male
  Weight: 94 kg

DRUGS (4)
  1. SORAFENIB [Suspect]
     Indication: THYROID CANCER METASTATIC
     Dosage: TOTAL DAILY DOSE: 800 MG  UNIT DOSE: 200 MG
     Route: 048
     Dates: start: 20100128, end: 20100226
  2. SORAFENIB [Suspect]
     Dosage: TOTAL DAILY DOSE: 400 MG  UNIT DOSE: 200 MG
     Route: 048
     Dates: start: 20100302
  3. LEVOXYL [Concomitant]
     Indication: THYROID THERAPY
     Route: 048
     Dates: start: 20090903
  4. AMITRIPTYLINE HCL [Concomitant]
     Indication: DEPRESSION
     Route: 048
     Dates: start: 20100128

REACTIONS (1)
  - FEBRILE NEUTROPENIA [None]
